FAERS Safety Report 6730182-8 (Version None)
Quarter: 2010Q2

REPORT INFORMATION
  Report Type: 
  Country: None (occurrence: None)
  Receive Date: 20100518
  Receipt Date: 20100506
  Transmission Date: 20101027
  Serious: No
  Sender: FDA-Public Use
  Company Number: US-JNJFOC-20100208776

PATIENT
  Sex: Male
  Weight: 68.04 kg

DRUGS (6)
  1. DURAGESIC-100 [Suspect]
     Indication: NECK PAIN
     Route: 062
  2. DURAGESIC-100 [Suspect]
     Dosage: 100 MCG +  50 MCG = 150 MCG PATCHES, NDC: 50458-094-05 AND NDC: 50458-092-05
     Route: 062
  3. DURAGESIC-100 [Suspect]
     Dosage: 100UG/HR+50UG/HR=150UG/HR
     Route: 062
  4. LISINOPRIL [Concomitant]
     Indication: BLOOD PRESSURE
     Route: 048
  5. ACCOLATE [Concomitant]
     Indication: ASTHMA
     Route: 048
  6. MAXAIR [Concomitant]
     Indication: ASTHMA
     Route: 055

REACTIONS (9)
  - FEELING ABNORMAL [None]
  - INAPPROPRIATE SCHEDULE OF DRUG ADMINISTRATION [None]
  - MUSCLE SPASMS [None]
  - NECK PAIN [None]
  - NERVOUSNESS [None]
  - PRODUCT QUALITY ISSUE [None]
  - RESTLESSNESS [None]
  - THERAPEUTIC RESPONSE DECREASED [None]
  - WITHDRAWAL SYNDROME [None]
